FAERS Safety Report 9826976 (Version 1)
Quarter: 2014Q1

REPORT INFORMATION
  Report Type: Spontaneous
  Country: US (occurrence: US)
  Receive Date: 20140117
  Receipt Date: 20140117
  Transmission Date: 20141002
  Serious: No
  Sender: FDA-Public Use
  Company Number: US-GLAXOSMITHKLINE-A1023430A

PATIENT
  Age: 72 Year
  Sex: Female

DRUGS (6)
  1. PROMACTA [Suspect]
     Indication: PLATELET COUNT DECREASED
     Dosage: 50MG PER DAY
     Route: 048
     Dates: start: 20130423
  2. MAGNESIUM [Concomitant]
  3. TYLENOL [Concomitant]
  4. MULTIVITAMINS [Concomitant]
  5. DIOVAN [Concomitant]
  6. POTASSIUM [Concomitant]

REACTIONS (5)
  - Fatigue [Not Recovered/Not Resolved]
  - Headache [Unknown]
  - Dizziness [Unknown]
  - Feeling abnormal [Unknown]
  - Drug ineffective [Unknown]
